FAERS Safety Report 5091636-6 (Version None)
Quarter: 2006Q3

REPORT INFORMATION
  Report Type: 
  Country: None (occurrence: None)
  Receive Date: 20060829
  Receipt Date: 20060823
  Transmission Date: 20061208
  Serious: Yes (Hospitalization)
  Sender: FDA-Public Use
  Company Number: US-SANOFI-SYNTHELABO-A03200605337

PATIENT
  Sex: Female

DRUGS (1)
  1. AMBIEN [Suspect]
     Indication: INSOMNIA
     Dosage: UNK
     Route: 048

REACTIONS (18)
  - BALANCE DISORDER [None]
  - BONE DISORDER [None]
  - CHONDROPATHY [None]
  - CONTUSION [None]
  - DELIRIUM [None]
  - DISORIENTATION [None]
  - DRUG ABUSER [None]
  - FALL [None]
  - GAIT DISTURBANCE [None]
  - HEAD INJURY [None]
  - INJURY [None]
  - MAJOR DEPRESSION [None]
  - PAIN [None]
  - POISONING [None]
  - SKIN LACERATION [None]
  - SPINAL OSTEOARTHRITIS [None]
  - SYNCOPE [None]
  - TACHYCARDIA [None]
